FAERS Safety Report 15526184 (Version 1)
Quarter: 2018Q4

REPORT INFORMATION
  Report Type: Spontaneous
  Country: FR (occurrence: FR)
  Receive Date: 20181018
  Receipt Date: 20181018
  Transmission Date: 20190205
  Serious: Yes (Hospitalization, Other)
  Sender: FDA-Public Use
  Company Number: FR-BRISTOL-MYERS SQUIBB COMPANY-BMS-2018-093980

PATIENT
  Age: 66 Year
  Sex: Male
  Weight: 88.7 kg

DRUGS (1)
  1. HYDREA [Suspect]
     Active Substance: HYDROXYUREA
     Indication: POLYCYTHAEMIA VERA
     Route: 048
     Dates: start: 20180723, end: 20180905

REACTIONS (5)
  - Pyrexia [Recovered/Resolved]
  - Lymphopenia [Recovering/Resolving]
  - Hepatitis cholestatic [Recovering/Resolving]
  - Hypersensitivity vasculitis [Recovering/Resolving]
  - Vascular purpura [Recovering/Resolving]

NARRATIVE: CASE EVENT DATE: 20180829
